FAERS Safety Report 10332722 (Version 5)
Quarter: 2016Q4

REPORT INFORMATION
  Report Type: Report from Study
  Country: BR (occurrence: BR)
  Receive Date: 20140722
  Receipt Date: 20161128
  Transmission Date: 20170206
  Serious: Yes (Other)
  Sender: FDA-Public Use
  Company Number: PHHY2014BR089159

PATIENT
  Sex: Female
  Weight: 65 kg

DRUGS (8)
  1. VELIJA [Concomitant]
     Active Substance: DULOXETINE HYDROCHLORIDE
     Indication: SLEEP DISORDER
     Dosage: 1 DF, QD
     Route: 048
  2. ALPRAZOLAM. [Concomitant]
     Active Substance: ALPRAZOLAM
     Indication: SLEEP DISORDER
     Dosage: 1 DF, QD
     Route: 048
  3. ACLASTA [Suspect]
     Active Substance: ZOLEDRONIC ACID
     Dosage: UNK
     Route: 065
     Dates: start: 20160120, end: 20160120
  4. DIAZEPAM. [Concomitant]
     Active Substance: DIAZEPAM
     Indication: SEDATIVE THERAPY
     Dosage: 1 DF, QD
     Route: 048
  5. ACLASTA [Suspect]
     Active Substance: ZOLEDRONIC ACID
     Indication: OSTEOPOROSIS
     Dosage: 5 MG, Q12MO
     Route: 042
     Dates: start: 20130822
  6. FRONTAL [Concomitant]
     Active Substance: ALPRAZOLAM
     Indication: SLEEP DISORDER
     Dosage: 1 DF, QD
     Route: 048
  7. ACLASTA [Suspect]
     Active Substance: ZOLEDRONIC ACID
     Indication: OSTEOPENIA
     Dosage: UNK
     Route: 042
     Dates: start: 201501
  8. VALIUM [Concomitant]
     Active Substance: DIAZEPAM
     Indication: DEPRESSION
     Dosage: 1 DF, QD
     Route: 048

REACTIONS (24)
  - Paraesthesia [Recovering/Resolving]
  - Intervertebral disc protrusion [Unknown]
  - Tooth loss [Unknown]
  - Alopecia [Recovering/Resolving]
  - Pruritus [Unknown]
  - Onychoclasis [Recovering/Resolving]
  - Headache [Recovered/Resolved]
  - Tooth disorder [Recovering/Resolving]
  - Toothache [Recovering/Resolving]
  - Pain [Recovering/Resolving]
  - Adrenal cyst [Not Recovered/Not Resolved]
  - Pneumonia [Recovered/Resolved]
  - Swelling face [Recovering/Resolving]
  - Gingival swelling [Recovering/Resolving]
  - Spinal pain [Unknown]
  - Concomitant disease aggravated [Recovering/Resolving]
  - Renal cyst [Not Recovered/Not Resolved]
  - Oral pain [Recovering/Resolving]
  - Pain in jaw [Recovering/Resolving]
  - Hypoaesthesia oral [Unknown]
  - Fear [Unknown]
  - Pancreatic cyst [Unknown]
  - Osteomyelitis [Recovering/Resolving]
  - Pyrexia [Recovered/Resolved]

NARRATIVE: CASE EVENT DATE: 2013
